FAERS Safety Report 9563407 (Version 1)
Quarter: 2013Q1

REPORT INFORMATION
  Report Type: Spontaneous
  Country: US (occurrence: None)
  Receive Date: 20121218
  Receipt Date: 20121218
  Transmission Date: 20140127
  Serious: Yes (Other)
  Sender: FDA-Public Use
  Company Number: PHEH2012US011096

PATIENT
  Sex: Male

DRUGS (1)
  1. ZOMETA (ZOLEDRONATE) UNKNOWN [Suspect]
     Indication: REPRODUCTIVE TRACT DISORDER
     Route: 042
     Dates: start: 20030501

REACTIONS (1)
  - Infection [None]
